FAERS Safety Report 6708185-9 (Version None)
Quarter: 2010Q2

REPORT INFORMATION
  Report Type: 
  Country: None (occurrence: None)
  Receive Date: 20100503
  Receipt Date: 20090529
  Transmission Date: 20101027
  Serious: No
  Sender: FDA-Public Use
  Company Number: US-ASTRAZENECA-2009UW13850

PATIENT
  Sex: Female

DRUGS (1)
  1. NEXIUM [Suspect]
     Indication: GASTROOESOPHAGEAL REFLUX DISEASE
     Route: 048
     Dates: start: 20090401, end: 20090401

REACTIONS (4)
  - DECREASED APPETITE [None]
  - DRY MOUTH [None]
  - INSOMNIA [None]
  - ORAL DISCOMFORT [None]
